FAERS Safety Report 13109382 (Version 1)
Quarter: 2017Q1

REPORT INFORMATION
  Report Type: Report from Study
  Country: FR (occurrence: FR)
  Receive Date: 20170112
  Receipt Date: 20170112
  Transmission Date: 20170428
  Serious: Yes (Hospitalization)
  Sender: FDA-Public Use
  Company Number: FR-IPSEN BIOPHARMACEUTICALS, INC.-2012-1844

PATIENT
  Age: 15 Year
  Sex: Male
  Weight: 41.9 kg

DRUGS (7)
  1. INCRELEX [Suspect]
     Active Substance: MECASERMIN
     Indication: PRIMARY INSULIN LIKE GROWTH FACTOR-1 DEFICIENCY
     Route: 058
     Dates: start: 20090626, end: 20090719
  2. INCRELEX [Suspect]
     Active Substance: MECASERMIN
     Indication: FAILURE TO THRIVE
     Route: 058
     Dates: start: 20110627
  3. INCRELEX [Suspect]
     Active Substance: MECASERMIN
     Route: 058
     Dates: start: 20090720, end: 20091025
  4. INCRELEX [Suspect]
     Active Substance: MECASERMIN
     Route: 058
     Dates: start: 20100715, end: 20101206
  5. INCRELEX [Suspect]
     Active Substance: MECASERMIN
     Route: 058
     Dates: start: 20101206, end: 20110310
  6. INCRELEX [Suspect]
     Active Substance: MECASERMIN
     Route: 058
     Dates: start: 20110310, end: 20110627
  7. INCRELEX [Suspect]
     Active Substance: MECASERMIN
     Route: 058
     Dates: start: 20091026, end: 20100715

REACTIONS (2)
  - Testicular torsion [Recovered/Resolved]
  - Testicular appendage torsion [Recovered/Resolved]

NARRATIVE: CASE EVENT DATE: 20120317
